FAERS Safety Report 5239450-2 (Version None)
Quarter: 2007Q1

REPORT INFORMATION
  Report Type: 
  Country: None (occurrence: None)
  Receive Date: 20070216
  Receipt Date: 20070209
  Transmission Date: 20070707
  Serious: Yes (Death, Life-Threatening, Hospitalization)
  Sender: FDA-Public Use
  Company Number: FR-AVENTIS-200614500FR

PATIENT
  Age: 84 Year
  Sex: Female

DRUGS (12)
  1. KETEK [Suspect]
     Indication: BRONCHITIS
     Route: 048
     Dates: start: 20060130
  2. AERIUS                             /01398501/ [Concomitant]
     Route: 048
     Dates: start: 20060124
  3. VADILEX [Concomitant]
     Route: 048
     Dates: start: 20060124
  4. PENTOXYFYLLIN [Concomitant]
     Route: 048
     Dates: start: 20060124
  5. FLECAINIDE ACETATE [Concomitant]
     Route: 048
     Dates: start: 20060124
  6. DOLIPRANE [Concomitant]
     Route: 048
     Dates: start: 20060124
  7. PAROXETINE HCL [Concomitant]
     Route: 048
     Dates: start: 20060124
  8. NAAXIA                             /00864801/ [Concomitant]
     Route: 031
     Dates: start: 20060124
  9. CEFUROXIME [Concomitant]
     Indication: BRONCHITIS
     Route: 048
     Dates: start: 20060124
  10. SURBRONC [Concomitant]
     Indication: BRONCHITIS
     Route: 048
     Dates: start: 20060124
  11. CORTICOSTEROIDS [Concomitant]
     Dates: start: 20060130
  12. ALL OTHER THERAPEUTIC PRODUCTS [Concomitant]
     Dates: start: 20060130

REACTIONS (19)
  - ANOREXIA [None]
  - ASTHENIA [None]
  - BLOOD POTASSIUM INCREASED [None]
  - BUNDLE BRANCH BLOCK LEFT [None]
  - CLAVICLE FRACTURE [None]
  - COMA [None]
  - CONFUSIONAL STATE [None]
  - DISTURBANCE IN ATTENTION [None]
  - FALL [None]
  - FATIGUE [None]
  - FOOD AVERSION [None]
  - HUMERUS FRACTURE [None]
  - HYPONATRAEMIA [None]
  - LOSS OF CONSCIOUSNESS [None]
  - NAUSEA [None]
  - PERIPHERAL ISCHAEMIA [None]
  - PHLEBITIS [None]
  - PULMONARY EMBOLISM [None]
  - THROMBOSIS [None]
